FAERS Safety Report 17884448 (Version 2)
Quarter: 2020Q2

REPORT INFORMATION
  Report Type: Spontaneous
  Country: US (occurrence: US)
  Receive Date: 20200611
  Receipt Date: 20200623
  Transmission Date: 20200714
  Serious: No
  Sender: FDA-Public Use
  Company Number: US-PFIZER INC-2020228044

PATIENT
  Age: 64 Year
  Sex: Female

DRUGS (2)
  1. INLYTA [Suspect]
     Active Substance: AXITINIB
     Dosage: 5 MG
     Dates: start: 20200608
  2. INLYTA [Suspect]
     Active Substance: AXITINIB
     Dosage: 5 MG
     Dates: start: 20200530

REACTIONS (3)
  - Nausea [Unknown]
  - Diarrhoea [Unknown]
  - Vomiting [Unknown]

NARRATIVE: CASE EVENT DATE: 2020
